FAERS Safety Report 6377681-9 (Version None)
Quarter: 2009Q3

REPORT INFORMATION
  Report Type: 
  Country: None (occurrence: None)
  Receive Date: 20090925
  Receipt Date: 20090915
  Transmission Date: 20100115
  Serious: Yes (Other)
  Sender: FDA-Public Use
  Company Number: CHPA2009JP18764

PATIENT
  Age: 45 Year
  Sex: Male

DRUGS (4)
  1. NICOTINELL TTS (NCH) [Suspect]
     Indication: SMOKING CESSATION THERAPY
     Dosage: 14 MG, QD
     Route: 062
     Dates: start: 20090801, end: 20090914
  2. MEILAX [Concomitant]
     Dosage: UNK
     Route: 048
  3. DEPAS [Concomitant]
     Dosage: UNK
     Route: 048
  4. RISPERDAL [Concomitant]
     Dosage: UNK
     Route: 048

REACTIONS (3)
  - DEPRESSIVE SYMPTOM [None]
  - STRESS [None]
  - SUICIDAL IDEATION [None]
